FAERS Safety Report 12491573 (Version 4)
Quarter: 2016Q4

REPORT INFORMATION
  Report Type: Spontaneous
  Country: US (occurrence: US)
  Receive Date: 20160623
  Receipt Date: 20161118
  Transmission Date: 20170207
  Serious: Yes (Other)
  Sender: FDA-Public Use
  Company Number: US-PFIZER INC-2016286684

PATIENT
  Age: 35 Year
  Sex: Female
  Weight: 66.21 kg

DRUGS (3)
  1. LYRICA [Suspect]
     Active Substance: PREGABALIN
     Dosage: 150 MG, UNK
  2. LYRICA [Suspect]
     Active Substance: PREGABALIN
     Dosage: 200 MG, DAILY
  3. LYRICA [Suspect]
     Active Substance: PREGABALIN
     Dosage: 50 MG, UNK

REACTIONS (14)
  - Thrombosis [Unknown]
  - Joint injury [Unknown]
  - Joint swelling [Unknown]
  - Malaise [Unknown]
  - Limb injury [Unknown]
  - Muscle rupture [Unknown]
  - Pain in extremity [Unknown]
  - Weight increased [Unknown]
  - Fall [Unknown]
  - Gait disturbance [Unknown]
  - Pain [Unknown]
  - Drug ineffective [Unknown]
  - Neuropathy peripheral [Unknown]
  - Peripheral swelling [Unknown]

NARRATIVE: CASE EVENT DATE: 1986
